FAERS Safety Report 21321571 (Version 1)
Quarter: 2022Q3

REPORT INFORMATION
  Report Type: Spontaneous
  Country: PL (occurrence: PL)
  Receive Date: 20220912
  Receipt Date: 20220912
  Transmission Date: 20221027
  Serious: Yes (Life-Threatening, Hospitalization, Other)
  Sender: FDA-Public Use
  Company Number: None

PATIENT
  Age: 29 Year
  Sex: Female

DRUGS (12)
  1. NALTREXONE [Suspect]
     Active Substance: NALTREXONE
     Indication: Prophylaxis
     Dosage: 16 MG, QD( (2 TABLETS AFTER LUNCH)
  2. ONDANSETRON [Suspect]
     Active Substance: ONDANSETRON
     Indication: Prophylaxis of nausea and vomiting
     Dosage: 16 MG, QD
  3. BUPROPION HYDROCHLORIDE\NALTREXONE HYDROCHLORIDE [Suspect]
     Active Substance: BUPROPION HYDROCHLORIDE\NALTREXONE HYDROCHLORIDE
     Dosage: 1 DF, QD(8/90, QD)
  4. BUPROPION HYDROCHLORIDE\NALTREXONE HYDROCHLORIDE [Suspect]
     Active Substance: BUPROPION HYDROCHLORIDE\NALTREXONE HYDROCHLORIDE
     Indication: Obesity
     Dosage: 2 DF, QD(2 TABLETS CONTAINING 8 MG OF NALTREXONE AND 90 MG OF BUPROPION PER DAY, AFTER MAIN MEAL)
  5. BUPROPION HYDROCHLORIDE\NALTREXONE HYDROCHLORIDE [Suspect]
     Active Substance: BUPROPION HYDROCHLORIDE\NALTREXONE HYDROCHLORIDE
     Dosage: 1 DF, QD(8/90, QD)
  6. BUPROPION HYDROCHLORIDE [Interacting]
     Active Substance: BUPROPION HYDROCHLORIDE
     Indication: Prophylaxis
     Dosage: 150 MG, QD(THROUGH FIRST 6 DAYS))
  7. BUPROPION HYDROCHLORIDE [Interacting]
     Active Substance: BUPROPION HYDROCHLORIDE
     Indication: Obesity
     Dosage: 300 MG, QD
  8. VORTIOXETINE [Interacting]
     Active Substance: VORTIOXETINE
     Indication: Prophylaxis
  9. VORTIOXETINE [Interacting]
     Active Substance: VORTIOXETINE
     Indication: Obesity
     Dosage: 10 MG, QD(TAKEN AFTER LAST MEAL)
  10. OZEMPIC [Interacting]
     Active Substance: SEMAGLUTIDE
     Indication: Obesity
     Dosage: 0.5 MG, QW
  11. NALTREXONE HYDROCHLORIDE [Suspect]
     Active Substance: NALTREXONE HYDROCHLORIDE
     Indication: Obesity
     Dosage: 8 MG, QD
  12. ONDANSETRON [Interacting]
     Active Substance: ONDANSETRON
     Indication: Prophylaxis of nausea and vomiting
     Dosage: 16 MG, QD

REACTIONS (20)
  - Renal failure [Recovered/Resolved]
  - Chills [Recovered/Resolved]
  - Myalgia [Recovered/Resolved]
  - Myopathy [Recovered/Resolved]
  - Headache [Recovered/Resolved]
  - Muscle spasms [Recovered/Resolved]
  - Body temperature increased [Recovered/Resolved]
  - Myoglobinuria [Recovered/Resolved]
  - Rhabdomyolysis [Recovering/Resolving]
  - Serotonin syndrome [Recovered/Resolved]
  - Hyperhidrosis [Recovered/Resolved]
  - Urinary retention [Recovering/Resolving]
  - Urine output decreased [Recovered/Resolved]
  - Product prescribing error [Unknown]
  - Contraindicated product prescribed [Unknown]
  - Labelled drug-drug interaction medication error [Unknown]
  - Contraindicated product administered [Unknown]
  - Off label use [Unknown]
  - Drug titration error [Unknown]
  - Off label use [Unknown]
